FAERS Safety Report 9125865 (Version 1)
Quarter: 2013Q1

REPORT INFORMATION
  Report Type: Spontaneous
  Country: GB (occurrence: GB)
  Receive Date: 20130117
  Receipt Date: 20130117
  Transmission Date: 20140127
  Serious: Yes (Other)
  Sender: FDA-Public Use
  Company Number: GB-SANOFI-AVENTIS-2013SA002588

PATIENT
  Age: 75 Year
  Sex: Male
  Weight: 99.78 kg

DRUGS (5)
  1. CLOPIDOGREL BISULFATE [Suspect]
     Indication: VASCULAR GRAFT
     Route: 065
     Dates: start: 20120511
  2. ANTIBIOTICS [Concomitant]
     Route: 065
  3. THYROXIN [Concomitant]
     Route: 065
  4. CO-CODAMOL [Concomitant]
     Route: 065
  5. WARFARIN [Concomitant]
     Route: 065

REACTIONS (2)
  - Gastric disorder [Not Recovered/Not Resolved]
  - Medication error [Unknown]
